FAERS Safety Report 15485508 (Version 2)
Quarter: 2018Q4

REPORT INFORMATION
  Report Type: Report from Study
  Country: BR (occurrence: BR)
  Receive Date: 20181010
  Receipt Date: 20181025
  Transmission Date: 20190205
  Serious: Yes (Other)
  Sender: FDA-Public Use
  Company Number: PHHY2018BR119400

PATIENT
  Sex: Female
  Weight: 74 kg

DRUGS (2)
  1. ACLASTA [Suspect]
     Active Substance: ZOLEDRONIC ACID
     Dosage: 1 DF, Q12MO
     Route: 065
  2. ACLASTA [Suspect]
     Active Substance: ZOLEDRONIC ACID
     Indication: BONE PAIN
     Dosage: 1 DF, Q12MO
     Route: 042
     Dates: start: 201712

REACTIONS (6)
  - Skin cancer [Recovered/Resolved]
  - Vitamin D deficiency [Recovered/Resolved]
  - Hypoacusis [Not Recovered/Not Resolved]
  - Parkinson^s disease [Unknown]
  - Vein rupture [Not Recovered/Not Resolved]
  - Tremor [Not Recovered/Not Resolved]
